FAERS Safety Report 8529936-7 (Version None)
Quarter: 2012Q3

REPORT INFORMATION
  Report Type: 
  Country: None (occurrence: None)
  Receive Date: 20120723
  Receipt Date: 20120713
  Transmission Date: 20120928
  Serious: No
  Sender: FDA-Public Use
  Company Number: US-BAYER-2012-071212

PATIENT
  Age: 47 Year
  Sex: Male
  Weight: 95.238 kg

DRUGS (6)
  1. NAPROXEN (ALEVE) [Suspect]
     Indication: BACK PAIN
     Dosage: 2 DF, BID
     Route: 048
     Dates: end: 20120713
  2. ZANEX [Concomitant]
  3. CORTICOSTEROID NOS [Concomitant]
  4. PREDNISONE [Concomitant]
  5. MAGNESIUM CITRATE [Concomitant]
  6. MUSCLE RELAXANTS [Concomitant]

REACTIONS (7)
  - ABDOMINAL PAIN LOWER [None]
  - ABDOMINAL PAIN UPPER [None]
  - GASTRIC DISORDER [None]
  - DYSPEPSIA [None]
  - CHEST PAIN [None]
  - FLATULENCE [None]
  - ABDOMINAL DISTENSION [None]
